FAERS Safety Report 5045258-3 (Version None)
Quarter: 2006Q2

REPORT INFORMATION
  Report Type: 
  Country: None (occurrence: None)
  Receive Date: 20060601
  Receipt Date: 20060419
  Transmission Date: 20061013
  Serious: No
  Sender: FDA-Public Use
  Company Number: 2006-BP-03870BP

PATIENT
  Age: 82 Year
  Sex: Male

DRUGS (11)
  1. SPIRIVA [Suspect]
     Indication: DYSPNOEA
     Dosage: 18 MCG (18 MCG, 1 IN 1 D), IH
     Route: 055
  2. SPIRIVA [Suspect]
     Indication: WHEEZING
     Dosage: 18 MCG (18 MCG, 1 IN 1 D), IH
     Route: 055
  3. SPIRIVA [Suspect]
  4. ALBUTEROL [Concomitant]
  5. POTASSIUM (POTASSIUM) [Concomitant]
  6. PROCARDIA [Concomitant]
  7. ATENOLOL [Concomitant]
  8. ZESTRIL [Concomitant]
  9. ELAVIL [Concomitant]
  10. NAPROXEN [Concomitant]
  11. FELODIPINE [Concomitant]

REACTIONS (1)
  - WHEEZING [None]
